FAERS Safety Report 25324756 (Version 1)
Quarter: 2025Q2

REPORT INFORMATION
  Report Type: Spontaneous
  Country: US (occurrence: US)
  Receive Date: 20250516
  Receipt Date: 20250516
  Transmission Date: 20250716
  Serious: Yes (Death, Other)
  Sender: JOHNSON AND JOHNSON
  Company Number: US-JNJFOC-20250513752

PATIENT
  Age: 67 Year
  Sex: Male

DRUGS (1)
  1. TALVEY [Suspect]
     Active Substance: TALQUETAMAB-TGVS
     Indication: Plasma cell myeloma refractory
     Route: 058
     Dates: start: 20250412

REACTIONS (3)
  - Death [Fatal]
  - Cytokine release syndrome [Unknown]
  - Neurotoxicity [Unknown]
